FAERS Safety Report 7558555-4 (Version None)
Quarter: 2011Q2

REPORT INFORMATION
  Report Type: 
  Country: None (occurrence: None)
  Receive Date: 20110621
  Receipt Date: 20110607
  Transmission Date: 20111010
  Serious: Yes (Hospitalization, Other)
  Sender: FDA-Public Use
  Company Number: US-PAR PHARMACEUTICAL, INC-2011SCPR003058

PATIENT

DRUGS (17)
  1. MEGESTROL ACETATE [Suspect]
     Indication: DECREASED APPETITE
     Dosage: 400 MG, BID
     Route: 048
     Dates: start: 20110101
  2. METOPROLOL TARTRATE [Concomitant]
     Indication: DIABETES MELLITUS
     Dosage: UNK, UNKNOWN
     Route: 065
  3. ASPIRIN [Concomitant]
     Indication: PROPHYLAXIS
     Dosage: UNK, UNKNOWN
     Route: 065
     Dates: start: 20110101
  4. FERROUS SULFATE TAB [Concomitant]
     Indication: MINERAL SUPPLEMENTATION
     Dosage: UNK, UNKNOWN
     Route: 065
  5. INOTUZUMAB OZOGAMICIN [Suspect]
     Indication: NON-HODGKIN'S LYMPHOMA
     Dosage: 3.6 MG, EVERY 28 DAYS
     Route: 042
     Dates: start: 20101120, end: 20101120
  6. COLACE [Concomitant]
     Indication: CONSTIPATION
     Dosage: UNK, UNKNOWN
     Route: 065
  7. COUMADIN [Concomitant]
     Indication: ATRIAL FIBRILLATION
     Dosage: UNK, UNKNOWN
     Route: 065
  8. MAGNESIUM OXIDE [Concomitant]
     Indication: SUPPLEMENTATION THERAPY
     Dosage: UNK, UNKNOWN
     Route: 065
  9. INOTUZUMAB OZOGAMICIN [Suspect]
     Dosage: 3.6 MG, EVERY 28 DAYS
     Route: 042
     Dates: start: 20110121, end: 20110121
  10. DULCOLAX [Concomitant]
     Indication: CONSTIPATION
     Dosage: UNK, UNKNOWN
     Route: 065
  11. FRAGMIN [Concomitant]
     Indication: THROMBOSIS PROPHYLAXIS
     Dosage: UNK, UNKNOWN
     Route: 065
     Dates: start: 20110107
  12. DICLOFENAC SODIUM [Concomitant]
     Indication: PRODUCT USED FOR UNKNOWN INDICATION
     Dosage: UNK, UNKNOWN
     Route: 065
  13. LASIX [Concomitant]
     Indication: HYPERTENSION
     Dosage: UNK, UNKNOWN
     Route: 065
     Dates: start: 20110101
  14. METFORMIN HCL [Concomitant]
     Indication: DIABETES MELLITUS
     Dosage: UNK, UNKNOWN
     Route: 065
  15. LISINOPRIL [Concomitant]
     Indication: HYPERTENSION
     Dosage: UNK, UNKNOWN
     Route: 065
     Dates: start: 20101220
  16. PROTONIX [Concomitant]
     Indication: PROPHYLAXIS
     Dosage: UNK, UNKNOWN
     Route: 065
     Dates: start: 20110107
  17. NITROGLYCERIN [Concomitant]
     Indication: ANGINA PECTORIS
     Dosage: UNK, UNKNOWN
     Route: 065

REACTIONS (5)
  - CEREBRAL INFARCTION [None]
  - NODULAR REGENERATIVE HYPERPLASIA [None]
  - CHOLELITHIASIS [None]
  - ELECTROLYTE IMBALANCE [None]
  - ASCITES [None]
